FAERS Safety Report 7481369-0 (Version None)
Quarter: 2011Q2

REPORT INFORMATION
  Report Type: 
  Country: None (occurrence: None)
  Receive Date: 20110516
  Receipt Date: 20110426
  Transmission Date: 20111010
  Serious: No
  Sender: FDA-Public Use
  Company Number: US-B.I. PHARMACEUTICALS,INC./RIDGEFIELD-2011-BP-05653BP

PATIENT
  Sex: Male

DRUGS (8)
  1. ZETIA [Concomitant]
     Indication: HYPERCHOLESTEROLAEMIA
     Dosage: 10 MG
     Route: 048
  2. NEURONTIN [Concomitant]
     Indication: NEURALGIA
     Dosage: 900 MG
     Route: 048
  3. FUROSEMIDE [Concomitant]
     Indication: OEDEMA PERIPHERAL
     Route: 048
  4. PRADAXA [Suspect]
     Indication: ATRIAL FIBRILLATION
     Dosage: 300 MG
     Route: 048
     Dates: start: 20110101
  5. FOSAMAX [Concomitant]
     Indication: OSTEOPOROSIS
     Dosage: 35 MG
     Route: 048
  6. SYNTHROID [Concomitant]
     Indication: HYPOTHYROIDISM
     Dosage: 150 MG
     Route: 048
  7. ATENOLOL [Concomitant]
     Indication: ATRIAL FIBRILLATION
     Dosage: 25 MG
     Route: 048
  8. CRESTOR [Concomitant]
     Indication: HYPERCHOLESTEROLAEMIA
     Route: 048

REACTIONS (5)
  - PRURITUS [None]
  - RASH [None]
  - DYSPNOEA [None]
  - ASTHENIA [None]
  - ARTHRALGIA [None]
